FAERS Safety Report 10472131 (Version 1)
Quarter: 2014Q3

REPORT INFORMATION
  Report Type: Report from Study
  Country: US (occurrence: US)
  Receive Date: 20140924
  Receipt Date: 20140924
  Transmission Date: 20150326
  Serious: Yes (Other)
  Sender: FDA-Public Use
  Company Number: US-ROCHE-1464134

PATIENT

DRUGS (3)
  1. PEGINTERFERON ALFA-2A [Suspect]
     Active Substance: PEGINTERFERON ALFA-2A
     Indication: HEPATITIS C
     Route: 065
  2. RIBAVIRIN. [Suspect]
     Active Substance: RIBAVIRIN
     Indication: HEPATITIS C
     Route: 065
  3. PEGINTERFERON ALFA-2B [Suspect]
     Active Substance: PEGINTERFERON ALFA-2B
     Indication: HEPATITIS C
     Route: 065

REACTIONS (10)
  - Mental disorder [Unknown]
  - Weight decreased [Unknown]
  - Anaemia [Unknown]
  - Renal failure [Unknown]
  - Decreased appetite [Unknown]
  - Victim of abuse [Unknown]
  - Renal failure acute [Unknown]
  - Virologic failure [Unknown]
  - Treatment noncompliance [Unknown]
  - Depression [Unknown]
